FAERS Safety Report 9616989 (Version 1)
Quarter: 2013Q4

REPORT INFORMATION
  Report Type: Spontaneous
  Country: US (occurrence: US)
  Receive Date: 20131011
  Receipt Date: 20131011
  Transmission Date: 20140711
  Serious: Yes (Other)
  Sender: FDA-Public Use
  Company Number: CHPA2013US015353

PATIENT
  Sex: Female

DRUGS (4)
  1. ASCRIPTIN BUFFERED CAPS UNKNOWN FORMULA [Suspect]
     Indication: ARTHRITIS
     Dosage: UNK, UNK
     Route: 048
  2. ASCRIPTIN BUFFERED CAPS UNKNOWN FORMULA [Suspect]
     Indication: OFF LABEL USE
  3. NAPROXEN [Suspect]
     Dosage: UNK,UNK
  4. TYLENOL [Concomitant]

REACTIONS (2)
  - Intervertebral disc protrusion [Unknown]
  - Hypersensitivity [Unknown]
